FAERS Safety Report 25493835 (Version 1)
Quarter: 2025Q2

REPORT INFORMATION
  Report Type: Report from Study
  Country: US (occurrence: US)
  Receive Date: 20250630
  Receipt Date: 20250630
  Transmission Date: 20250716
  Serious: Yes (Hospitalization)
  Sender: BIOGEN
  Company Number: US-BIOGEN-2025BI01315385

PATIENT
  Sex: Female

DRUGS (1)
  1. TYSABRI [Suspect]
     Active Substance: NATALIZUMAB
     Indication: Multiple sclerosis
     Route: 050
     Dates: start: 20221018, end: 20241018

REACTIONS (3)
  - Pre-eclampsia [Recovered/Resolved]
  - Mood swings [Recovered/Resolved]
  - Maternal exposure during pregnancy [Recovered/Resolved]
